FAERS Safety Report 8735145 (Version 4)
Quarter: 2014Q2

REPORT INFORMATION
  Report Type: Spontaneous
  Country: GB (occurrence: GB)
  Receive Date: 20120821
  Receipt Date: 20140501
  Transmission Date: 20141212
  Serious: Yes (Death)
  Sender: FDA-Public Use
  Company Number: PHHY2012GB071705

PATIENT
  Age: 17 Year
  Sex: Female

DRUGS (2)
  1. CO-CODAMOL [Suspect]
     Route: 042
  2. CANNABIS [Suspect]

REACTIONS (2)
  - Myocardial infarction [Fatal]
  - Overdose [Fatal]
